FAERS Safety Report 14827116 (Version 1)
Quarter: 2018Q2

REPORT INFORMATION
  Report Type: Spontaneous
  Country: US (occurrence: US)
  Receive Date: 20180430
  Receipt Date: 20180430
  Transmission Date: 20180711
  Serious: No
  Sender: FDA-Public Use
  Company Number: US-ABBVIE-17P-163-2164078-00

PATIENT
  Age: 64 Year
  Sex: Female
  Weight: 70.37 kg

DRUGS (3)
  1. PEPCID AC [Concomitant]
     Active Substance: FAMOTIDINE
     Indication: PANCREATIC FAILURE
     Dates: start: 201709
  2. AMLODIPINE [Concomitant]
     Active Substance: AMLODIPINE BESYLATE
     Indication: HYPERTENSION
  3. CREON [Suspect]
     Active Substance: PANCRELIPASE AMYLASE\PANCRELIPASE LIPASE\PANCRELIPASE PROTEASE
     Indication: PANCREATIC FAILURE
     Dosage: 1-2 CAPSULES ONE HOUR BEFORE A HIGH FAT MEAL.
     Route: 048
     Dates: start: 201711

REACTIONS (4)
  - Intentional product misuse [Not Recovered/Not Resolved]
  - Drug ineffective [Not Recovered/Not Resolved]
  - Off label use [Not Recovered/Not Resolved]
  - Steatorrhoea [Not Recovered/Not Resolved]

NARRATIVE: CASE EVENT DATE: 201711
